FAERS Safety Report 15651094 (Version 3)
Quarter: 2019Q1

REPORT INFORMATION
  Report Type: Spontaneous
  Country: IN (occurrence: IN)
  Receive Date: 20181123
  Receipt Date: 20190201
  Transmission Date: 20190417
  Serious: Yes (Other)
  Sender: FDA-Public Use
  Company Number: IN-ROCHE-2177352

PATIENT
  Age: 35 Year
  Sex: Female

DRUGS (8)
  1. VINCRISTINE [Concomitant]
     Active Substance: VINCRISTINE
     Indication: NON-HODGKIN^S LYMPHOMA
     Route: 065
     Dates: start: 20180822
  2. DOXORUBICIN [Concomitant]
     Active Substance: DOXORUBICIN
     Indication: NON-HODGKIN^S LYMPHOMA
     Route: 065
     Dates: start: 20180822
  3. RISTOVA [Suspect]
     Active Substance: RITUXIMAB
     Indication: DIFFUSE LARGE B-CELL LYMPHOMA
     Route: 042
     Dates: start: 20180822
  4. RISTOVA [Suspect]
     Active Substance: RITUXIMAB
     Indication: NON-HODGKIN^S LYMPHOMA
  5. ETOPOSIDE. [Concomitant]
     Active Substance: ETOPOSIDE
     Indication: NON-HODGKIN^S LYMPHOMA
     Route: 065
     Dates: start: 20180822
  6. FILGRASTIM [Concomitant]
     Active Substance: FILGRASTIM
     Indication: PRODUCT USED FOR UNKNOWN INDICATION
  7. CYCLOPHOSPHAMIDE. [Concomitant]
     Active Substance: CYCLOPHOSPHAMIDE
     Indication: NON-HODGKIN^S LYMPHOMA
     Route: 065
     Dates: start: 20180822
  8. PREDNISONE. [Concomitant]
     Active Substance: PREDNISONE
     Indication: NON-HODGKIN^S LYMPHOMA
     Route: 065
     Dates: start: 20180822

REACTIONS (18)
  - Anal fissure [Unknown]
  - Decreased appetite [Unknown]
  - Feeling abnormal [Unknown]
  - Vomiting [Unknown]
  - Pain in extremity [Unknown]
  - Nail discolouration [Unknown]
  - Malaise [Unknown]
  - Dizziness [Unknown]
  - Asthenia [Unknown]
  - Sensory disturbance [Recovered/Resolved]
  - Asthenia [Unknown]
  - Headache [Unknown]
  - Nausea [Unknown]
  - Hepatic enzyme increased [Unknown]
  - Pain [Unknown]
  - Skin discolouration [Unknown]
  - Musculoskeletal stiffness [Unknown]
  - Pyrexia [Unknown]

NARRATIVE: CASE EVENT DATE: 20180829
